FAERS Safety Report 7206921-9 (Version None)
Quarter: 2011Q1

REPORT INFORMATION
  Report Type: 
  Country: None (occurrence: None)
  Receive Date: 20110103
  Receipt Date: 20101215
  Transmission Date: 20110831
  Serious: Yes (Congenital Anomaly)
  Sender: FDA-Public Use
  Company Number: A0681628A

PATIENT
  Sex: Male
  Weight: 4 kg

DRUGS (2)
  1. PAXIL [Suspect]
     Indication: DEPRESSION
     Dosage: 20MG PER DAY
     Dates: start: 19910101, end: 20030101
  2. PRENATAL VITAMINS [Concomitant]

REACTIONS (3)
  - MULTIPLE CONGENITAL ABNORMALITIES [None]
  - CARDIAC MURMUR [None]
  - DRUG EXPOSURE DURING PREGNANCY [None]
